FAERS Safety Report 19041108 (Version 6)
Quarter: 2021Q2

REPORT INFORMATION
  Report Type: Spontaneous
  Country: JP (occurrence: JP)
  Receive Date: 20210323
  Receipt Date: 20210518
  Transmission Date: 20210717
  Serious: Yes (Hospitalization, Other)
  Sender: FDA-Public Use
  Company Number: JP-UCBSA-2021010972

PATIENT
  Age: 3 Year
  Sex: Female
  Weight: 15 kg

DRUGS (4)
  1. MUCODYNE [Suspect]
     Active Substance: CARBOCYSTEINE
     Indication: COUGH
     Dosage: UNK, 8 ML PER DAY
     Route: 048
     Dates: start: 20210225, end: 20210225
  2. XYZAL [Suspect]
     Active Substance: LEVOCETIRIZINE DIHYDROCHLORIDE
     Indication: RHINORRHOEA
     Dosage: TOOK A 3 TO 4?DAY SUPPLY OF XYZAL SYRUP AT ONCE
     Route: 048
     Dates: start: 20210225, end: 20210225
  3. XYZAL [Suspect]
     Active Substance: LEVOCETIRIZINE DIHYDROCHLORIDE
     Indication: COUGH
     Dosage: 2.5 MILLILITER, 2X/DAY (BID)
     Route: 048
     Dates: start: 20210222, end: 20210225
  4. MUCODYNE [Suspect]
     Active Substance: CARBOCYSTEINE
     Indication: RHINORRHOEA
     Dosage: 4 MILLILITER, 2X/DAY (BID)
     Route: 048
     Dates: start: 20210222, end: 20210225

REACTIONS (14)
  - Hypophagia [Recovered/Resolved]
  - Vomiting [Recovered/Resolved]
  - Somnolence [Recovered/Resolved]
  - Product use in unapproved indication [Unknown]
  - Hunger [Recovered/Resolved]
  - Malaise [Recovered/Resolved]
  - Dehydration [Recovered/Resolved]
  - Altered state of consciousness [Recovered/Resolved]
  - Peripheral coldness [Recovered/Resolved]
  - Decreased appetite [Recovered/Resolved]
  - Hyporesponsive to stimuli [Recovered/Resolved]
  - Pallor [Recovered/Resolved]
  - Ocular dysmetria [Recovered/Resolved]
  - Accidental overdose [Unknown]

NARRATIVE: CASE EVENT DATE: 20210225
